FAERS Safety Report 22102036 (Version 1)
Quarter: 2023Q1

REPORT INFORMATION
  Report Type: Spontaneous
  Country: US (occurrence: US)
  Receive Date: 20230316
  Receipt Date: 20230316
  Transmission Date: 20230418
  Serious: No
  Sender: FDA-Public Use
  Company Number: US-GLENMARK PHARMACEUTICALS-2022GMK075233

PATIENT

DRUGS (1)
  1. IMIQUIMOD [Suspect]
     Active Substance: IMIQUIMOD
     Indication: Product used for unknown indication
     Dosage: UNK, TWO WEEKS ON, TWO WEEKS OFF AND TWO WEEKS ON
     Route: 065

REACTIONS (8)
  - Skin discolouration [Unknown]
  - Inappropriate schedule of product administration [Unknown]
  - Papule [Unknown]
  - Dry skin [Unknown]
  - Swelling face [Unknown]
  - Scab [Unknown]
  - Skin exfoliation [Unknown]
  - Erythema [Unknown]
